FAERS Safety Report 18286289 (Version 2)
Quarter: 2020Q4

REPORT INFORMATION
  Report Type: Spontaneous
  Country: CN (occurrence: CN)
  Receive Date: 20200920
  Receipt Date: 20201007
  Transmission Date: 20210113
  Serious: Yes (Hospitalization, Other)
  Sender: FDA-Public Use
  Company Number: CN-LUPIN PHARMACEUTICALS INC.-2020-06101

PATIENT
  Age: 58 Year
  Sex: Male

DRUGS (7)
  1. TEICOPLANIN [Suspect]
     Active Substance: TEICOPLANIN
     Indication: CORYNEBACTERIUM INFECTION
     Dosage: 0.4 GRAM, BID (IV DRIP)
     Route: 042
  2. LINEZOLID. [Suspect]
     Active Substance: LINEZOLID
     Indication: CORYNEBACTERIUM INFECTION
     Dosage: 600 MILLIGRAM, BID
     Route: 048
  3. LINEZOLID. [Suspect]
     Active Substance: LINEZOLID
     Indication: STAPHYLOCOCCAL INFECTION
  4. TEICOPLANIN [Suspect]
     Active Substance: TEICOPLANIN
     Indication: STAPHYLOCOCCAL INFECTION
  5. INDOMETHACIN [INDOMETACIN] [Concomitant]
     Active Substance: INDOMETHACIN
     Indication: PYREXIA
     Dosage: 0.05 GRAM, UNK
     Route: 065
  6. LEVOFLOXACIN. [Concomitant]
     Active Substance: LEVOFLOXACIN
     Indication: CORYNEBACTERIUM INFECTION
     Dosage: 0.5 GRAM, QD
     Route: 065
  7. VANCOMYCIN [Suspect]
     Active Substance: VANCOMYCIN
     Indication: CORYNEBACTERIUM INFECTION
     Dosage: 1 GRAM, BID (EVERY 12 HOURS)
     Route: 042

REACTIONS (5)
  - Drug reaction with eosinophilia and systemic symptoms [Recovering/Resolving]
  - Hyponatraemia [Unknown]
  - Pyrexia [Recovered/Resolved]
  - Therapeutic product cross-reactivity [Recovering/Resolving]
  - Nutritional condition abnormal [Unknown]
